FAERS Safety Report 7573070-X (Version None)
Quarter: 2011Q2

REPORT INFORMATION
  Report Type: 
  Country: None (occurrence: None)
  Receive Date: 20110627
  Receipt Date: 20110616
  Transmission Date: 20111010
  Serious: Yes (Hospitalization)
  Sender: FDA-Public Use
  Company Number: FR-JNJFOC-20110609225

PATIENT
  Age: 53 Year
  Sex: Male

DRUGS (8)
  1. FLAGYL [Suspect]
     Indication: ABSCESS
     Route: 048
     Dates: start: 20110404, end: 20110507
  2. ROCEPHIN [Suspect]
     Indication: PRODUCT USED FOR UNKNOWN INDICATION
     Route: 065
     Dates: start: 20110404, end: 20110416
  3. ALFUZOSIN HCL [Suspect]
     Indication: PRODUCT USED FOR UNKNOWN INDICATION
     Route: 048
     Dates: start: 20110311, end: 20110508
  4. IMODIUM [Concomitant]
     Indication: PRODUCT USED FOR UNKNOWN INDICATION
     Route: 065
     Dates: start: 20110101
  5. NEXIUM [Suspect]
     Indication: PRODUCT USED FOR UNKNOWN INDICATION
     Route: 048
     Dates: start: 20110204, end: 20110508
  6. SMECTITE [Concomitant]
     Indication: PRODUCT USED FOR UNKNOWN INDICATION
     Route: 065
     Dates: start: 20110101
  7. LEVOFLOXACIN [Suspect]
     Indication: ABSCESS
     Route: 048
     Dates: start: 20110416, end: 20110507
  8. ENOXAPARIN SODIUM [Suspect]
     Indication: PRODUCT USED FOR UNKNOWN INDICATION
     Route: 058
     Dates: start: 20110204, end: 20110507

REACTIONS (4)
  - GASTROINTESTINAL INFECTION [None]
  - AGRANULOCYTOSIS [None]
  - DEHYDRATION [None]
  - NEUTROPENIA [None]
